FAERS Safety Report 9896236 (Version 1)
Quarter: 2014Q1

REPORT INFORMATION
  Report Type: Spontaneous
  Country: US (occurrence: US)
  Receive Date: 20140213
  Receipt Date: 20140213
  Transmission Date: 20141002
  Serious: No
  Sender: FDA-Public Use
  Company Number: US-009507513-1402USA005473

PATIENT
  Age: 19 Year
  Sex: Female
  Weight: 54.42 kg

DRUGS (1)
  1. NUVARING [Suspect]
     Route: 067

REACTIONS (1)
  - Incorrect product storage [Unknown]
